FAERS Safety Report 25412052 (Version 1)
Quarter: 2025Q2

REPORT INFORMATION
  Report Type: Spontaneous
  Country: US (occurrence: US)
  Receive Date: 20250609
  Receipt Date: 20250609
  Transmission Date: 20250717
  Serious: Yes (Other)
  Sender: RANBAXY
  Company Number: US-SUN PHARMACEUTICAL INDUSTRIES LTD-2025R1-509191

PATIENT
  Age: 30 Year
  Sex: Female

DRUGS (1)
  1. DOXYCYCLINE [Suspect]
     Active Substance: DOXYCYCLINE
     Indication: Sinusitis
     Route: 048

REACTIONS (4)
  - Intracranial pressure increased [Unknown]
  - Optic nerve disorder [Recovering/Resolving]
  - Optic perineuritis [Recovering/Resolving]
  - Papilloedema [Recovered/Resolved]
